FAERS Safety Report 11485305 (Version 1)
Quarter: 2015Q3

REPORT INFORMATION
  Report Type: Spontaneous
  Country: US (occurrence: None)
  Receive Date: 20150909
  Receipt Date: 20150909
  Transmission Date: 20151125
  Serious: No
  Sender: FDA-Public Use
  Company Number: None

PATIENT

DRUGS (1)
  1. STAPLES INSTANT HAND SANITIZER [Suspect]
     Active Substance: ALCOHOL

REACTIONS (2)
  - Product name confusion [None]
  - Product label issue [None]

NARRATIVE: CASE EVENT DATE: 20150908
